FAERS Safety Report 6879641-8 (Version None)
Quarter: 2010Q3

REPORT INFORMATION
  Report Type: 
  Country: None (occurrence: None)
  Receive Date: 20100728
  Receipt Date: 20090811
  Transmission Date: 20110219
  Serious: No
  Sender: FDA-Public Use
  Company Number: -MYLANLABS-2009S1014411

PATIENT
  Sex: Male

DRUGS (2)
  1. CLONIDINE HYDROCHLORIDE [Suspect]
     Indication: BLOOD PRESSURE INCREASED
     Route: 048
  2. CLONIDINE HYDROCHLORIDE [Suspect]
     Route: 048
     Dates: end: 20090801

REACTIONS (3)
  - BLOOD PRESSURE INCREASED [None]
  - DRUG ADMINISTRATION ERROR [None]
  - DRUG EFFECT DECREASED [None]
